FAERS Safety Report 5816458-7 (Version None)
Quarter: 2008Q3

REPORT INFORMATION
  Report Type: 
  Country: None (occurrence: None)
  Receive Date: 20080721
  Receipt Date: 20080716
  Transmission Date: 20090109
  Serious: Yes (Disabling, Other)
  Sender: FDA-Public Use
  Company Number: JP-BRISTOL-MYERS SQUIBB COMPANY-14243992

PATIENT
  Age: 69 Year
  Sex: Female

DRUGS (3)
  1. TAXOL [Suspect]
     Indication: NON-SMALL CELL LUNG CANCER
     Dosage: STARTED ON 24-APR-2008.
     Route: 041
     Dates: start: 20080508, end: 20080508
  2. CARBOMERCK [Suspect]
     Indication: NON-SMALL CELL LUNG CANCER
     Dosage: 1DOSAGE FORM:AUC. STARTED ON 24-APR-2008.
     Route: 041
     Dates: start: 20080508, end: 20080508
  3. RADIATION THERAPY [Suspect]

REACTIONS (4)
  - DEAFNESS [None]
  - DYSPHAGIA [None]
  - HYPOAESTHESIA [None]
  - LEUKOPENIA [None]
